APPROVED DRUG PRODUCT: ELIGLUSTAT TARTRATE
Active Ingredient: ELIGLUSTAT TARTRATE
Strength: EQ 84MG BASE
Dosage Form/Route: CAPSULE;ORAL
Application: A212474 | Product #001
Applicant: TEVA PHARMACEUTICALS USA INC
Approved: Dec 27, 2021 | RLD: No | RS: No | Type: DISCN